FAERS Safety Report 6156069-X (Version None)
Quarter: 2009Q2

REPORT INFORMATION
  Report Type: 
  Country: None (occurrence: None)
  Receive Date: 20090415
  Receipt Date: 20090408
  Transmission Date: 20091009
  Serious: Yes (Other)
  Sender: FDA-Public Use
  Company Number: US-PFIZER INC-2006040162

PATIENT
  Sex: Female

DRUGS (11)
  1. PROVERA [Suspect]
     Indication: HORMONE REPLACEMENT THERAPY
     Dosage: 10 MG, UNK
     Route: 048
     Dates: start: 19910401, end: 19961201
  2. PROVERA [Suspect]
     Indication: MENOPAUSAL SYMPTOMS
  3. PREMARIN [Suspect]
     Indication: HORMONE REPLACEMENT THERAPY
     Dosage: 0.625 MG, UNK
     Route: 065
     Dates: start: 19940201, end: 19950901
  4. PREMARIN [Suspect]
     Indication: MENOPAUSAL SYMPTOMS
  5. ESTRACE [Suspect]
     Indication: HORMONE REPLACEMENT THERAPY
     Dosage: 5 MG, UNK
     Route: 065
     Dates: start: 19950301, end: 19961201
  6. ESTRACE [Suspect]
     Indication: MENOPAUSAL SYMPTOMS
  7. ESTRADERM [Suspect]
     Indication: HORMONE REPLACEMENT THERAPY
     Dosage: 0.5 MG, UNK
     Route: 065
     Dates: start: 19940301, end: 19950301
  8. ESTRADERM [Suspect]
     Indication: MENOPAUSAL SYMPTOMS
  9. ASPIRIN [Concomitant]
     Indication: CEREBROVASCULAR ACCIDENT
     Dosage: UNK
     Dates: start: 19970101
  10. CELEBREX [Concomitant]
     Indication: ARTHRITIS
     Dosage: 100 MG, UNK
     Dates: start: 19990101, end: 20060101
  11. NEURONTIN [Concomitant]
     Indication: ARTHRITIS
     Dosage: UNK
     Dates: start: 19970101, end: 20050101

REACTIONS (1)
  - BREAST CANCER [None]
